FAERS Safety Report 14928238 (Version 1)
Quarter: 2018Q2

REPORT INFORMATION
  Report Type: Spontaneous
  Country: US (occurrence: US)
  Receive Date: 20180504
  Receipt Date: 20180504
  Transmission Date: 20180711
  Serious: Yes (Other)
  Sender: FDA-Public Use
  Company Number: None

PATIENT
  Age: 66 Year
  Sex: Male

DRUGS (1)
  1. HARVONI [Suspect]
     Active Substance: LEDIPASVIR\SOFOSBUVIR
     Indication: HEPATITIS B
     Dosage: 90/400MG QD PO
     Route: 048
     Dates: start: 20180123, end: 20180420

REACTIONS (3)
  - Swelling [None]
  - Hernia [None]
  - Oedema peripheral [None]

NARRATIVE: CASE EVENT DATE: 20180123
